FAERS Safety Report 7148402-7 (Version None)
Quarter: 2010Q4

REPORT INFORMATION
  Report Type: 
  Country: None (occurrence: None)
  Receive Date: 20101124
  Receipt Date: 20101112
  Transmission Date: 20110411
  Serious: Yes (Other)
  Sender: FDA-Public Use
  Company Number: WAES 1011USA01920

PATIENT
  Age: 75 Year
  Sex: Male

DRUGS (10)
  1. VYTORIN [Suspect]
     Indication: ACUTE CORONARY SYNDROME
     Dosage: 10-40 MG DAILY PO
     Route: 048
     Dates: start: 20061024
  2. PLACEBO [Suspect]
     Indication: ACUTE CORONARY SYNDROME
     Dosage: PO
     Route: 048
     Dates: start: 20061024
  3. PLACEBO [Suspect]
     Indication: ACUTE CORONARY SYNDROME
     Dosage: PO
     Route: 048
     Dates: start: 20061024
  4. ALLOPURINOL [Concomitant]
  5. AMLODIPINE [Concomitant]
  6. ASPIRIN [Concomitant]
  7. CELIPROLOL HCL [Concomitant]
  8. HYDROCHLOROTHIAZIDE [Concomitant]
  9. MIANSERIN HCL [Concomitant]
  10. VALSARTAN [Concomitant]

REACTIONS (1)
  - PROSTATE CANCER [None]
